FAERS Safety Report 18329430 (Version 1)
Quarter: 2020Q3

REPORT INFORMATION
  Report Type: Spontaneous
  Country: SE (occurrence: SE)
  Receive Date: 20200930
  Receipt Date: 20200930
  Transmission Date: 20201103
  Serious: Yes (Death)
  Sender: FDA-Public Use
  Company Number: SE-TEVA-2020-SE-1832264

PATIENT
  Age: 82 Year
  Sex: Female

DRUGS (10)
  1. ALVEDON [Concomitant]
     Active Substance: ACETAMINOPHEN
     Dates: end: 202007
  2. ISOPTIN [Concomitant]
     Active Substance: VERAPAMIL HYDROCHLORIDE
     Dates: end: 20200715
  3. ATORBIR [Concomitant]
     Active Substance: ATORVASTATIN
     Dates: end: 20200725
  4. BISOPROLOL [Concomitant]
     Active Substance: BISOPROLOL
     Dates: end: 20200705
  5. DONEPEZIL. [Suspect]
     Active Substance: DONEPEZIL
     Indication: DEMENTIA
     Dosage: 10MG 0 + 1
     Route: 048
     Dates: end: 20200714
  6. FOLACIN [Concomitant]
     Dates: end: 20200715
  7. BETOLVIDON [Concomitant]
     Active Substance: CYANOCOBALAMIN
     Dates: end: 20200715
  8. LEVAXIN [Concomitant]
     Active Substance: LEVOTHYROXINE SODIUM
     Dates: end: 20200725
  9. DIGOXIN. [Concomitant]
     Active Substance: DIGOXIN
     Dates: end: 20200714
  10. WARAN [Concomitant]
     Active Substance: WARFARIN SODIUM
     Dates: end: 20200704

REACTIONS (1)
  - Hepatic cirrhosis [Fatal]

NARRATIVE: CASE EVENT DATE: 20200705
